FAERS Safety Report 5918280-X (Version None)
Quarter: 2008Q4

REPORT INFORMATION
  Report Type: 
  Country: None (occurrence: None)
  Receive Date: 20081010
  Receipt Date: 20080929
  Transmission Date: 20090506
  Serious: Yes (Hospitalization)
  Sender: FDA-Public Use
  Company Number: CHPA2008US16414

PATIENT
  Age: 48 Year
  Sex: Female
  Weight: 52.2 kg

DRUGS (1)
  1. 4 WAY METHOLATED NASAL SPRAY (NCH) (PHENYLEPHRINE) NASAL SPRAY [Suspect]
     Indication: NASAL CONGESTION
     Dosage: NASAL
     Dates: start: 20080301, end: 20080301

REACTIONS (1)
  - INTRACRANIAL ANEURYSM [None]
